FAERS Safety Report 8351052-8 (Version None)
Quarter: 2012Q2

REPORT INFORMATION
  Report Type: 
  Country: None (occurrence: None)
  Receive Date: 20120510
  Receipt Date: 20120504
  Transmission Date: 20120825
  Serious: Yes (Hospitalization)
  Sender: FDA-Public Use
  Company Number: US-BAYER-2012-044784

PATIENT
  Age: 62 Year
  Sex: Female

DRUGS (4)
  1. NOVOLIN [INSULIN] [Suspect]
     Indication: TYPE 2 DIABETES MELLITUS
     Dosage: DAILY DOSE 40 IU
  2. ASPIRIN [Suspect]
  3. SAXAGLIPTIN/PLACEBO [Suspect]
     Indication: TYPE 2 DIABETES MELLITUS
     Dosage: UNK
     Dates: start: 20111021
  4. CLOPIDOGREL [Concomitant]

REACTIONS (7)
  - ASTHENIA [None]
  - DYSPNOEA [None]
  - DIZZINESS [None]
  - HYPOGLYCAEMIA [None]
  - DYSARTHRIA [None]
  - MENTAL STATUS CHANGES [None]
  - GASTROINTESTINAL HAEMORRHAGE [None]
